FAERS Safety Report 6647307-5 (Version None)
Quarter: 2010Q1

REPORT INFORMATION
  Report Type: 
  Country: None (occurrence: None)
  Receive Date: 20100323
  Receipt Date: 20100315
  Transmission Date: 20100710
  Serious: Yes (Other)
  Sender: FDA-Public Use
  Company Number: B0629802A

PATIENT
  Age: 65 Year
  Sex: Male
  Weight: 82 kg

DRUGS (5)
  1. ZIDOVUDINE [Suspect]
     Indication: HIV INFECTION
  2. REYATAZ [Suspect]
     Indication: HIV INFECTION
     Dosage: 300MG PER DAY
     Route: 048
     Dates: start: 20060501
  3. RITONAVIR [Suspect]
     Indication: HIV INFECTION
     Dosage: 100MG PER DAY
     Dates: start: 20060501
  4. DAPSONE [Concomitant]
     Dosage: 100MG PER DAY
     Route: 048
  5. COMBIVIR [Concomitant]
     Route: 048
     Dates: start: 20060501

REACTIONS (2)
  - JAUNDICE [None]
  - LIPOATROPHY [None]
